FAERS Safety Report 6670268-X (Version None)
Quarter: 2010Q2

REPORT INFORMATION
  Report Type: 
  Country: None (occurrence: None)
  Receive Date: 20100405
  Receipt Date: 20100325
  Transmission Date: 20101027
  Serious: Yes (Other)
  Sender: FDA-Public Use
  Company Number: 009389

PATIENT
  Age: 70 Year
  Sex: Male

DRUGS (6)
  1. ROTIGOTINE (ROTIGOTINE) [Suspect]
     Indication: PARKINSON'S DISEASE
     Dosage: (8 MG QD), (16 MG QD)
  2. HYDROCHLOROTHIAZIDE [Suspect]
  3. QUETIAPINE (QUETIAPINE) [Suspect]
     Dosage: (12.5 MG DAILY)
  4. RASAGILINE (RASAGILINE) [Suspect]
     Indication: ON AND OFF PHENOMENON
  5. STALEVO 100 [Concomitant]
  6. ANTIHYPERTENSIVES [Concomitant]

REACTIONS (4)
  - ABNORMAL BEHAVIOUR [None]
  - HYPERHIDROSIS [None]
  - OEDEMA PERIPHERAL [None]
  - RHABDOMYOLYSIS [None]
